FAERS Safety Report 24305932 (Version 1)
Quarter: 2024Q3

REPORT INFORMATION
  Report Type: Spontaneous
  Country: US (occurrence: US)
  Receive Date: 20240911
  Receipt Date: 20240911
  Transmission Date: 20241016
  Serious: Yes (Hospitalization, Other)
  Sender: LUOXIN AUROVITAS PHARMA(CHENGDU)
  Company Number: US-LUOXIN-LUX-2024-US-LIT-00049

PATIENT
  Age: 33 Year
  Sex: Male

DRUGS (9)
  1. ALBUTEROL SULFATE\IPRATROPIUM BROMIDE [Suspect]
     Active Substance: ALBUTEROL SULFATE\IPRATROPIUM BROMIDE
     Indication: Obstructive airways disorder
     Route: 065
  2. FUROSEMIDE [Suspect]
     Active Substance: FUROSEMIDE
     Indication: Pulmonary hypertension
     Route: 065
  3. BUDESONIDE\FORMOTEROL [Suspect]
     Active Substance: BUDESONIDE\FORMOTEROL
     Indication: Obstructive airways disorder
     Route: 065
  4. HELIOX [Suspect]
     Active Substance: OXYGEN
     Indication: Obstructive airways disorder
     Route: 065
  5. SILDENAFIL [Concomitant]
     Active Substance: SILDENAFIL
     Indication: Pulmonary hypertension
     Route: 065
  6. TREPROSTINIL [Concomitant]
     Active Substance: TREPROSTINIL
     Indication: Pulmonary hypertension
     Dosage: 9 BREATHS
     Route: 065
  7. EPOPROSTENOL [Concomitant]
     Active Substance: EPOPROSTENOL
     Indication: Pulmonary hypertension
     Route: 065
  8. ILOPROST [Concomitant]
     Active Substance: ILOPROST
     Indication: Pulmonary hypertension
     Route: 065
  9. ILOPROST [Concomitant]
     Active Substance: ILOPROST
     Route: 065

REACTIONS (1)
  - Drug ineffective [Unknown]
